FAERS Safety Report 6686181-8 (Version None)
Quarter: 2010Q2

REPORT INFORMATION
  Report Type: 
  Country: None (occurrence: None)
  Receive Date: 20100419
  Receipt Date: 20100401
  Transmission Date: 20101027
  Serious: Yes (Disabling, Other)
  Sender: FDA-Public Use
  Company Number: GB-B.I. PHARMACEUTICALS,INC./RIDGEFIELD-2010-UK-00194UK

PATIENT
  Sex: Male

DRUGS (4)
  1. MIRAPEX [Suspect]
     Indication: PARKINSON'S DISEASE
     Dosage: 2.1 MG
     Route: 048
     Dates: start: 20030101, end: 20100101
  2. MADOPAR CR [Concomitant]
     Indication: PARKINSON'S DISEASE
     Dosage: 125MG X2 AT NIGHT
     Route: 048
  3. STALEVO 100 [Concomitant]
     Indication: PARKINSON'S DISEASE
     Dosage: 1DF 4/1 DAYS
     Route: 048
  4. ALFUZOSIN HCL [Concomitant]
     Indication: PROSTATOMEGALY
     Dosage: 10 MG
     Route: 048

REACTIONS (4)
  - MYOPIA [None]
  - NORMAL TENSION GLAUCOMA [None]
  - OPTIC DISC DISORDER [None]
  - RETINAL DEGENERATION [None]
